FAERS Safety Report 4467345-0 (Version None)
Quarter: 2004Q4

REPORT INFORMATION
  Report Type: 
  Country: None (occurrence: None)
  Receive Date: 20041004
  Receipt Date: 20040920
  Transmission Date: 20050328
  Serious: Yes (Other)
  Sender: FDA-Public Use
  Company Number: US-2004-030943

PATIENT
  Age: 56 Year
  Sex: Female
  Weight: 105.2 kg

DRUGS (12)
  1. BETASERON [Suspect]
     Indication: MULTIPLE SCLEROSIS
     Dosage: SEE IMAGE
     Route: 058
     Dates: start: 20040801, end: 20040826
  2. BETASERON [Suspect]
     Indication: MULTIPLE SCLEROSIS
     Dosage: SEE IMAGE
     Route: 058
     Dates: start: 20040811
  3. EFEFXOR-XR (VENLAFXINE HYDROCHLORIDE) [Concomitant]
  4. LIPITOR [Concomitant]
  5. HYDROCODONE W/APAP (HYDROCODONE) [Concomitant]
  6. VALIUM [Concomitant]
  7. SYNTHROID [Concomitant]
  8. NEURONTIN [Concomitant]
  9. DITROPAN /SCH/ (OXYBUTYNIN HYDROCHLORIDE) [Concomitant]
  10. ESTRATES (ESTROGENS ESTERIFIED, METHYLTESTOSTERONE) [Concomitant]
  11. OXYCODONE/APAP (OXYCODONE [Concomitant]
  12. MAXALT [Concomitant]

REACTIONS (7)
  - AGGRESSION [None]
  - ANGER [None]
  - COGNITIVE DISORDER [None]
  - FAMILY STRESS [None]
  - FEELING OF DESPAIR [None]
  - NEGATIVE THOUGHTS [None]
  - SUICIDAL IDEATION [None]
